FAERS Safety Report 6885105-8 (Version None)
Quarter: 2010Q3

REPORT INFORMATION
  Report Type: 
  Country: None (occurrence: None)
  Receive Date: 20100729
  Receipt Date: 20071111
  Transmission Date: 20110219
  Serious: Yes (Other)
  Sender: FDA-Public Use
  Company Number: US-PFIZER INC-2007096150

PATIENT
  Sex: Female
  Weight: 122.72 kg

DRUGS (3)
  1. CELEBREX [Suspect]
     Indication: TENDONITIS
     Dates: start: 20071108, end: 20071111
  2. ALL OTHER THERAPEUTIC PRODUCTS [Suspect]
     Indication: ARTHRALGIA
     Dates: start: 20071108, end: 20071108
  3. WELLBUTRIN [Concomitant]

REACTIONS (4)
  - FUNGAL INFECTION [None]
  - PRURITUS [None]
  - RASH [None]
  - SKIN IRRITATION [None]
